FAERS Safety Report 24375927 (Version 1)
Quarter: 2024Q3

REPORT INFORMATION
  Report Type: Other
  Country: LB (occurrence: LB)
  Receive Date: 20240928
  Receipt Date: 20240928
  Transmission Date: 20241016
  Serious: Yes (Life-Threatening, Hospitalization)
  Sender: B BRAUN
  Company Number: LB-B.Braun Medical Inc.-2162151

PATIENT
  Age: 73 Year
  Sex: Male

DRUGS (4)
  1. HEPARIN SODIUM IN DEXTROSE [Suspect]
     Active Substance: HEPARIN SODIUM
     Indication: Pulmonary embolism
  2. TENECTEPLASE [Suspect]
     Active Substance: TENECTEPLASE
  3. METHYLPREDNISOLONE [Concomitant]
     Active Substance: METHYLPREDNISOLONE
  4. LEVOFLOXACIN [Concomitant]
     Active Substance: LEVOFLOXACIN

REACTIONS (3)
  - Drug ineffective [Unknown]
  - Haemoglobin decreased [Unknown]
  - Haematoma [Unknown]
